FAERS Safety Report 21253292 (Version 3)
Quarter: 2022Q3

REPORT INFORMATION
  Report Type: Report from Study
  Country: US (occurrence: US)
  Receive Date: 20220825
  Receipt Date: 20220927
  Transmission Date: 20221026
  Serious: Yes (Other)
  Sender: FDA-Public Use
  Company Number: US-NOVARTISTESTPH-NVSC2022US189071

PATIENT
  Sex: Female

DRUGS (1)
  1. COSENTYX [Suspect]
     Active Substance: SECUKINUMAB
     Indication: Psoriasis
     Dosage: 300 MG, QW (ONCE A WEEK FOR 5 WEEKS, THEN ONCE EVERY 4 WEEKS)
     Route: 058
     Dates: start: 20220704

REACTIONS (7)
  - Abdominal distension [Unknown]
  - Muscle spasms [Unknown]
  - Hidradenitis [Unknown]
  - Condition aggravated [Recovering/Resolving]
  - Swelling [Recovering/Resolving]
  - Skin lesion [Unknown]
  - Inflammation [Unknown]
